FAERS Safety Report 9841265 (Version 1)
Quarter: 2014Q1

REPORT INFORMATION
  Report Type: Report from Study
  Country: IT (occurrence: IT)
  Receive Date: 20140124
  Receipt Date: 20140124
  Transmission Date: 20141002
  Serious: Yes (Other)
  Sender: FDA-Public Use
  Company Number: PHHY2014IT006642

PATIENT
  Age: 48 Year
  Sex: Female

DRUGS (5)
  1. ZOLEDRONIC ACID [Suspect]
     Dosage: UNK UKN, UNK
  2. EPIRUBICIN [Suspect]
     Dosage: 90MG/SQUARE METER
  3. TAMOXIFEN [Suspect]
     Dosage: 20 MG, BID
  4. TRIPTORELIN [Suspect]
     Dosage: UNK UKN, UNK
  5. CYCLOPHOSPHAMIDE [Suspect]
     Dosage: 600MG/SQUARE METRE

REACTIONS (3)
  - Neoplasm [Unknown]
  - Anaemia [Unknown]
  - Asthenia [Unknown]
